FAERS Safety Report 7154856-2 (Version None)
Quarter: 2010Q4

REPORT INFORMATION
  Report Type: 
  Country: None (occurrence: None)
  Receive Date: 20101214
  Receipt Date: 20091112
  Transmission Date: 20110411
  Serious: No
  Sender: FDA-Public Use
  Company Number: US-AMGEN-KDL374242

PATIENT

DRUGS (8)
  1. ENBREL [Suspect]
     Indication: PRODUCT USED FOR UNKNOWN INDICATION
     Dosage: 50 MG, QWK
     Route: 058
  2. RALOXIFEN HCL [Concomitant]
     Dosage: 60 MG, UNK
  3. JANUMET [Concomitant]
     Dosage: UNK UNK, UNK
  4. GLUCOSAMINE [Concomitant]
     Dosage: 500 MG, UNK
  5. EZETIMIBE/SIMVASTATIN [Concomitant]
     Dosage: UNK UNK, UNK
  6. MULTI-VITAMINS [Concomitant]
     Dosage: UNK UNK, UNK
  7. ENALAPRIL MALEATE [Concomitant]
     Dosage: 5 MG, UNK
  8. TRIAMTERENE AND HYDROCHLOROTHIAZIDE [Concomitant]
     Dosage: UNK UNK, UNK

REACTIONS (1)
  - DIZZINESS [None]
